FAERS Safety Report 13996358 (Version 3)
Quarter: 2018Q2

REPORT INFORMATION
  Report Type: Spontaneous
  Country: GB (occurrence: GB)
  Receive Date: 20170921
  Receipt Date: 20180417
  Transmission Date: 20180711
  Serious: Yes (Disabling, Other)
  Sender: FDA-Public Use
  Company Number: GB-TEVA-806713ACC

PATIENT
  Sex: Female

DRUGS (1)
  1. METFORMIN [Suspect]
     Active Substance: METFORMIN HYDROCHLORIDE
     Indication: DIABETES MELLITUS
     Dosage: THREE TIMES A WEEK (UNSPECIFIED)
     Route: 065

REACTIONS (6)
  - Arthralgia [Unknown]
  - Eye movement disorder [Unknown]
  - Paraesthesia oral [Unknown]
  - Skin discolouration [Unknown]
  - Back pain [Unknown]
  - Malaise [Unknown]
